FAERS Safety Report 25321265 (Version 2)
Quarter: 2025Q4

REPORT INFORMATION
  Report Type: Report from Study
  Country: US (occurrence: US)
  Receive Date: 20250515
  Receipt Date: 20251027
  Transmission Date: 20260117
  Serious: Yes (Other)
  Sender: ABBVIE
  Company Number: US-ABBVIE-6280105

PATIENT
  Age: 52 Year
  Sex: Male

DRUGS (3)
  1. SKYRIZI [Suspect]
     Active Substance: RISANKIZUMAB-RZAA
     Indication: Psoriasis
     Dosage: TIME INTERVAL: TOTAL: FORM STRENGTH: 150MG/ML, WEEK 0
     Route: 058
     Dates: start: 202503, end: 202503
  2. SKYRIZI [Suspect]
     Active Substance: RISANKIZUMAB-RZAA
     Dosage: TIME INTERVAL: TOTAL: FORM STRENGTH: 150MG/ML, WEEK 4
     Route: 058
     Dates: start: 20250509, end: 20250509
  3. SKYRIZI [Suspect]
     Active Substance: RISANKIZUMAB-RZAA
     Dosage: FORM STRENGTH: 150MG/ML
     Route: 058
     Dates: start: 202508

REACTIONS (2)
  - Bladder cancer recurrent [Unknown]
  - Pollakiuria [Unknown]

NARRATIVE: CASE EVENT DATE: 20250101
